FAERS Safety Report 21284717 (Version 1)
Quarter: 2022Q3

REPORT INFORMATION
  Report Type: Spontaneous
  Country: US (occurrence: US)
  Receive Date: 20220902
  Receipt Date: 20220902
  Transmission Date: 20221027
  Serious: No
  Sender: FDA-Public Use
  Company Number: ENDG22-03857

PATIENT
  Age: 53 Year
  Sex: Female
  Weight: 62.132 kg

DRUGS (5)
  1. PREDNISONE [Suspect]
     Active Substance: PREDNISONE
     Indication: Drug hypersensitivity
     Dosage: 40 MG, UNKNOWN
     Route: 065
     Dates: start: 202206, end: 202206
  2. PREDNISONE [Suspect]
     Active Substance: PREDNISONE
     Dosage: 60 MG, UNKNOWN
     Route: 065
     Dates: start: 202206, end: 202206
  3. PREDNISONE [Suspect]
     Active Substance: PREDNISONE
     Dosage: 40 MG, UNKNOWN
     Route: 065
     Dates: start: 202206
  4. OMEGA-3                            /01866101/ [Concomitant]
     Indication: Product used for unknown indication
     Dosage: 690 MG, DAILY
     Route: 065
  5. VITAMIN D                          /00107901/ [Concomitant]
     Indication: Product used for unknown indication
     Dosage: 2000 IU, DAILY
     Route: 065

REACTIONS (1)
  - Drug ineffective [Unknown]

NARRATIVE: CASE EVENT DATE: 20220601
